FAERS Safety Report 4665745-7 (Version None)
Quarter: 2005Q2

REPORT INFORMATION
  Report Type: 
  Country: None (occurrence: None)
  Receive Date: 20050517
  Receipt Date: 20050131
  Transmission Date: 20051028
  Serious: No
  Sender: FDA-Public Use
  Company Number: S05-USA-00538-01

PATIENT
  Age: 85 Year
  Sex: Female

DRUGS (9)
  1. NAMENDA [Suspect]
     Indication: DEMENTIA ALZHEIMER'S TYPE
     Dosage: 5 MG QD PO
     Route: 048
     Dates: start: 20050126
  2. KLONOPIN [Concomitant]
  3. LEXAPRO [Concomitant]
  4. ALTACE [Concomitant]
  5. DIGOXIN [Concomitant]
  6. CARDIZEM [Concomitant]
  7. DETROL LA [Concomitant]
  8. POTASSIUM CHLORIDE [Concomitant]
  9. ASPIRIN [Concomitant]

REACTIONS (2)
  - HEMIPARESIS [None]
  - MUSCLE SPASMS [None]
